FAERS Safety Report 8199534-6 (Version None)
Quarter: 2012Q1

REPORT INFORMATION
  Report Type: 
  Country: None (occurrence: None)
  Receive Date: 20120310
  Receipt Date: 20120307
  Transmission Date: 20120608
  Serious: Yes (Other)
  Sender: FDA-Public Use
  Company Number: US-PFIZER INC-2012062052

PATIENT
  Sex: Female
  Weight: 81.6 kg

DRUGS (3)
  1. PROTONIX [Concomitant]
     Indication: GASTROOESOPHAGEAL REFLUX DISEASE
     Dosage: 40 MG, 1X/DAY
  2. ZOLOFT [Suspect]
     Indication: ANXIETY
     Dosage: 100 MG, 1X/DAY
     Dates: end: 20100101
  3. ZOLOFT [Suspect]
     Indication: DEPRESSION

REACTIONS (1)
  - MYOCARDIAL INFARCTION [None]
